FAERS Safety Report 9815362 (Version 2)
Quarter: 2014Q1

REPORT INFORMATION
  Report Type: Report from Study
  Country: MX (occurrence: MX)
  Receive Date: 20140114
  Receipt Date: 20140114
  Transmission Date: 20141002
  Serious: Yes (Other)
  Sender: FDA-Public Use
  Company Number: MX-ORION CORPORATION ORION PHARMA-ENTC2012-0510

PATIENT
  Age: 87 Year
  Sex: Female

DRUGS (7)
  1. STALEVO [Suspect]
     Indication: PARKINSON^S DISEASE
     Dosage: STRENGTH: 150/37.5/200 MG
     Route: 048
     Dates: start: 2009, end: 201301
  2. STALEVO [Suspect]
     Dosage: STRENGTH: 150/37.5/200 MG
     Route: 048
     Dates: start: 201301
  3. STALEVO [Suspect]
     Dosage: HALF TABLET IN THE MORNING AND HALF TABLET AT NIGHT, WHEN NEEDED; STRENGTH: 150/37.5/200 MG
     Route: 048
     Dates: start: 201301
  4. MICARDIS [Concomitant]
     Indication: HYPERTENSION
     Dosage: STRENGTH: 40 MG
     Route: 065
  5. NORVAS [Concomitant]
     Indication: HYPERTENSION
     Route: 065
  6. TAFIL [Concomitant]
     Indication: INSOMNIA
     Dosage: 1 TABLET IN THE MORNING (0.25 MG) AND 1 TABLET AT NIGHT (0.50 MG)
     Route: 065
     Dates: start: 201101
  7. IMIPRAMINE [Concomitant]
     Route: 065

REACTIONS (9)
  - Wrong technique in drug usage process [Unknown]
  - Insomnia [Not Recovered/Not Resolved]
  - Nausea [Not Recovered/Not Resolved]
  - Vomiting [Not Recovered/Not Resolved]
  - Fall [Not Recovered/Not Resolved]
  - Humerus fracture [Recovered/Resolved]
  - Upper limb fracture [Recovered/Resolved]
  - Hypophagia [Not Recovered/Not Resolved]
  - Constipation [Not Recovered/Not Resolved]
